FAERS Safety Report 18404293 (Version 3)
Quarter: 2020Q4

REPORT INFORMATION
  Report Type: Report from Study
  Country: None (occurrence: CH)
  Receive Date: 20201020
  Receipt Date: 20201106
  Transmission Date: 20210114
  Serious: Yes (Death, Hospitalization, Other)
  Sender: FDA-Public Use
  Company Number: CH-ABBVIE-20K-151-3615202-00

PATIENT
  Age: 72 Year
  Sex: Male

DRUGS (3)
  1. DUODOPA [Suspect]
     Active Substance: CARBIDOPA\LEVODOPA
     Dosage: MD: 4 ML, CRD: 2 ML/H, ED: 0 ML/16 H THERAPY?1 CASSETTE/DAY
     Route: 050
     Dates: start: 20200824
  2. DUODOPA [Suspect]
     Active Substance: CARBIDOPA\LEVODOPA
     Dosage: MD: 5 ML, CRD: 2.2 ML/H, ED: 0 ML/16 H THERAPY
     Route: 050
     Dates: start: 20200516, end: 20200824
  3. DUODOPA [Suspect]
     Active Substance: CARBIDOPA\LEVODOPA
     Indication: PARKINSON^S DISEASE
     Route: 050
     Dates: start: 20171025, end: 20200516

REACTIONS (4)
  - Urinary tract infection [Unknown]
  - Fall [Recovered/Resolved]
  - Post procedural complication [Fatal]
  - Femoral neck fracture [Unknown]

NARRATIVE: CASE EVENT DATE: 2020
